FAERS Safety Report 21371760 (Version 1)
Quarter: 2022Q3

REPORT INFORMATION
  Report Type: Spontaneous
  Country: US (occurrence: None)
  Receive Date: 20220922
  Receipt Date: 20220922
  Transmission Date: 20221027
  Serious: Yes (Other)
  Sender: FDA-Public Use
  Company Number: None

PATIENT
  Age: 56 Year
  Sex: Male
  Weight: 77.56 kg

DRUGS (1)
  1. TACROLIMUS [Suspect]
     Active Substance: TACROLIMUS
     Indication: Liver transplant
     Dosage: FREQUENCY : TWICE A DAY;?
     Route: 048
     Dates: start: 2007, end: 2019

REACTIONS (9)
  - Product substitution issue [None]
  - Therapeutic response changed [None]
  - Fatigue [None]
  - Dyspnoea [None]
  - Depression [None]
  - Diarrhoea [None]
  - Weight decreased [None]
  - Hypertension [None]
  - Stomatitis [None]
